FAERS Safety Report 7901267-5 (Version None)
Quarter: 2011Q4

REPORT INFORMATION
  Report Type: 
  Country: None (occurrence: None)
  Receive Date: 20111108
  Receipt Date: 20111102
  Transmission Date: 20120403
  Serious: Yes (Life-Threatening, Hospitalization)
  Sender: FDA-Public Use
  Company Number: PHHY2011AR097234

PATIENT
  Sex: Male

DRUGS (1)
  1. DIOVAN [Suspect]
     Indication: HYPERTENSION
     Dosage: 80 MG,DAILY
     Dates: start: 20111019

REACTIONS (5)
  - CARDIAC ENZYMES INCREASED [None]
  - APHASIA [None]
  - MYOCARDIAL INFARCTION [None]
  - ISCHAEMIA [None]
  - ACUTE PULMONARY OEDEMA [None]
